FAERS Safety Report 19499113 (Version 2)
Quarter: 2021Q3

REPORT INFORMATION
  Report Type: Spontaneous
  Country: JP (occurrence: JP)
  Receive Date: 20210706
  Receipt Date: 20210806
  Transmission Date: 20211014
  Serious: Yes (Hospitalization, Other)
  Sender: FDA-Public Use
  Company Number: JP-009507513-2107JPN000284J

PATIENT
  Age: 74 Year
  Sex: Male
  Weight: 168 kg

DRUGS (1)
  1. KEYTRUDA [Suspect]
     Active Substance: PEMBROLIZUMAB
     Indication: GASTRIC CANCER STAGE IV
     Dosage: 200 MILLIGRAM, Q3W
     Route: 041
     Dates: start: 20210518

REACTIONS (1)
  - Gastrointestinal stenosis [Recovered/Resolved]

NARRATIVE: CASE EVENT DATE: 20210601
